FAERS Safety Report 8255336-3 (Version None)
Quarter: 2012Q2

REPORT INFORMATION
  Report Type: 
  Country: None (occurrence: None)
  Receive Date: 20120403
  Receipt Date: 20120330
  Transmission Date: 20120825
  Serious: No
  Sender: FDA-Public Use
  Company Number: US-BAYER-2012-031899

PATIENT
  Sex: Female
  Weight: 92.971 kg

DRUGS (7)
  1. CLARITIN [Concomitant]
     Dosage: 10 MG
  2. IBUPROFEN [Concomitant]
     Dosage: 200 MG
  3. MULTI-VITAMIN [Concomitant]
  4. ATORVASTATIN [Concomitant]
     Dosage: 10 MG
  5. LOSARTAN POTASSIUM [Concomitant]
     Dosage: 100 MG
  6. BETASERON [Suspect]
     Dosage: 1 ML, QOD
     Route: 058
  7. NEXIUM [Concomitant]
     Dosage: 20 MG

REACTIONS (2)
  - INJECTION SITE ERYTHEMA [None]
  - INJECTION SITE PRURITUS [None]
